FAERS Safety Report 15178158 (Version 2)
Quarter: 2018Q4

REPORT INFORMATION
  Report Type: Spontaneous
  Country: JP (occurrence: JP)
  Receive Date: 20180721
  Receipt Date: 20181203
  Transmission Date: 20190204
  Serious: Yes (Life-Threatening)
  Sender: FDA-Public Use
  Company Number: JP-SUN PHARMACEUTICAL INDUSTRIES LTD-2018R1-178735

PATIENT
  Age: 74 Year
  Sex: Female

DRUGS (2)
  1. DIGOXIN. [Suspect]
     Active Substance: DIGOXIN
     Indication: SEPTIC SHOCK
     Dosage: 0.25 UNK
     Route: 065
  2. VERAPAMIL [Suspect]
     Active Substance: VERAPAMIL HYDROCHLORIDE
     Indication: SEPTIC SHOCK
     Dosage: 5 UNK
     Route: 065

REACTIONS (1)
  - Drug ineffective [Unknown]
